FAERS Safety Report 4321933-0 (Version None)
Quarter: 2004Q1

REPORT INFORMATION
  Report Type: 
  Country: None (occurrence: None)
  Receive Date: 20040319
  Receipt Date: 20040309
  Transmission Date: 20041129
  Serious: Yes (Hospitalization, Other)
  Sender: FDA-Public Use
  Company Number: USA-2004-0013645

PATIENT
  Age: 46 Year
  Sex: Male

DRUGS (2)
  1. OXYCONTIN [Suspect]
     Indication: PAIN
     Dosage: 40 MG, Q12H, ORAL
     Route: 048
     Dates: start: 20030101
  2. PERCOCET [Concomitant]

REACTIONS (2)
  - DRUG ABUSER [None]
  - NECROTISING FASCIITIS [None]
